FAERS Safety Report 17800915 (Version 3)
Quarter: 2021Q4

REPORT INFORMATION
  Report Type: Spontaneous
  Country: AU (occurrence: AU)
  Receive Date: 20200519
  Receipt Date: 20211108
  Transmission Date: 20220304
  Serious: Yes (Life-Threatening, Hospitalization, Other)
  Sender: FDA-Public Use
  Company Number: AU-CIPLA LTD.-2020AU03327

PATIENT

DRUGS (10)
  1. ESCITALOPRAM [Suspect]
     Active Substance: ESCITALOPRAM OXALATE
     Dosage: 28 TABLETS (10 MG TABLET), 280 MILLIGRAM
     Route: 048
     Dates: start: 20191107, end: 201911
  2. ACETAMINOPHEN [Suspect]
     Active Substance: ACETAMINOPHEN
     Dosage: UNK, 55 GRAMS
     Route: 048
     Dates: start: 20191107, end: 201911
  3. MOCLOBEMIDE [Suspect]
     Active Substance: MOCLOBEMIDE
     Dosage: 106 TABLETS OF 150 MG, 15,900 MG
     Route: 048
     Dates: start: 20191107, end: 201911
  4. VENLAFAXINE [Suspect]
     Active Substance: VENLAFAXINE HYDROCHLORIDE
     Dosage: 12 TABLETS OF 75 MG, 900 MG
     Route: 048
     Dates: start: 20191107, end: 201911
  5. TRAMADOL [Suspect]
     Active Substance: TRAMADOL
     Dosage: 10 TABLETS OF 100 MG, 1000 MG
     Route: 048
     Dates: start: 20191107, end: 201911
  6. AMLODIPINE\VALSARTAN [Suspect]
     Active Substance: AMLODIPINE\VALSARTAN
     Dosage: 28 TABLETS OF 32/5 MG, 896/140 MG
     Route: 048
     Dates: start: 20191107, end: 201911
  7. FLUOXETINE [Suspect]
     Active Substance: FLUOXETINE HYDROCHLORIDE
     Dosage: 28 TABLETS OF 20 MG, 560 MG
     Route: 048
     Dates: start: 20191107, end: 201911
  8. ESOMEPRAZOLE [Suspect]
     Active Substance: ESOMEPRAZOLE
     Dosage: 28 TABLETS OF 20 MG, 560 MILLIGRAM
     Route: 048
     Dates: start: 20191107, end: 201911
  9. XELJANZ [Suspect]
     Active Substance: TOFACITINIB CITRATE
     Dosage: 56 TABLETS OF 5 MG, 280 MILLIGRAM
     Route: 048
     Dates: start: 20191107, end: 201911
  10. ALCOHOL [Suspect]
     Active Substance: ALCOHOL
     Dosage: UNK, 4 BEERS (BAL IN ED 0.1 PERCENT)
     Route: 048
     Dates: start: 20191107, end: 201911

REACTIONS (8)
  - Physical deconditioning [Recovered/Resolved]
  - Metabolic acidosis [Recovered/Resolved]
  - Montreal cognitive assessment abnormal [Recovered/Resolved]
  - Major depression [Recovered/Resolved]
  - Acute kidney injury [Recovered/Resolved]
  - Serotonin syndrome [Recovered/Resolved]
  - Intentional overdose [Recovered/Resolved]
  - Suicide attempt [Recovered/Resolved]

NARRATIVE: CASE EVENT DATE: 20191107
